FAERS Safety Report 10440326 (Version 2)
Quarter: 2014Q3

REPORT INFORMATION
  Report Type: Spontaneous
  Country: GB (occurrence: GB)
  Receive Date: 20140909
  Receipt Date: 20140909
  Transmission Date: 20150326
  Serious: Yes (Hospitalization)
  Sender: FDA-Public Use
  Company Number: GB-ROCHE-1456480

PATIENT
  Age: 59 Year
  Sex: Female

DRUGS (3)
  1. NAPROXEN. [Suspect]
     Active Substance: NAPROXEN
     Indication: BACK PAIN
     Dosage: LAST DOSE PRIOR TO SERIOUS ADVERSE EVENT: 10/MAY/2011
     Route: 065
     Dates: start: 20110505
  2. COCODAMOL [Concomitant]
     Active Substance: ACETAMINOPHEN\CODEINE PHOSPHATE
     Indication: BACK PAIN
     Dosage: 8/500 AS NECESSARY FOUR TIMES A DAY.
     Route: 065
  3. NITROFURANTOIN. [Suspect]
     Active Substance: NITROFURANTOIN
     Indication: URINARY TRACT INFECTION
     Route: 065
     Dates: start: 20110505

REACTIONS (6)
  - Hydronephrosis [Unknown]
  - Renal failure acute [Recovered/Resolved]
  - Costovertebral angle tenderness [Unknown]
  - Drug ineffective [Unknown]
  - Retroperitoneal fibrosis [Unknown]
  - Ureteric obstruction [Unknown]

NARRATIVE: CASE EVENT DATE: 20110505
